FAERS Safety Report 23967532 (Version 4)
Quarter: 2024Q2

REPORT INFORMATION
  Report Type: Spontaneous
  Country: US (occurrence: US)
  Receive Date: 20240612
  Receipt Date: 20240627
  Transmission Date: 20240716
  Serious: No
  Sender: FDA-Public Use
  Company Number: US-BIOVITRUM-2024-US-008470

PATIENT
  Age: 80 Year
  Sex: Male

DRUGS (1)
  1. VONJO [Suspect]
     Active Substance: PACRITINIB
     Indication: Myeloproliferative neoplasm
     Dosage: 200 MG TWICE A DAY (BID)
     Route: 048
     Dates: start: 20240601

REACTIONS (10)
  - Intentional product misuse [Not Recovered/Not Resolved]
  - Eating disorder [Unknown]
  - Inappropriate schedule of product administration [Unknown]
  - Torticollis [Unknown]
  - Muscle tightness [Unknown]
  - Scoliosis [Unknown]
  - Vomiting [Unknown]
  - Diarrhoea [Unknown]
  - Product dose omission issue [Unknown]
  - Weight decreased [Unknown]
